FAERS Safety Report 10732775 (Version 1)
Quarter: 2015Q1

REPORT INFORMATION
  Report Type: Spontaneous
  Country: JP (occurrence: None)
  Receive Date: 20150120
  Receipt Date: 20150120
  Transmission Date: 20150721
  Serious: Yes (Other)
  Sender: FDA-Public Use
  Company Number: INT_00660_2015

PATIENT
  Age: 56 Year
  Sex: Male

DRUGS (2)
  1. CISPLATIN (CISPLATIN) (HQ SPECIALTY) [Suspect]
     Active Substance: CISPLATIN
     Indication: GASTRIC CANCER
     Dosage: 60 MG/M2 ON DAY 8, EVERY 5 WEEKS, 6 CYCLES
  2. GIMERACIL W/OTERACIL POTASSIUM/TEGAFUR [Suspect]
     Active Substance: GIMERACIL\OTERACIL\TEGAFUR
     Indication: GASTRIC CANCER
     Dosage: 40 MG/M2  TWICE DAILY ON DAYS 2-21, EVERY 5 WEEKS, 6 CYCLES

REACTIONS (1)
  - Thrombocytopenia [None]
